FAERS Safety Report 12806106 (Version 1)
Quarter: 2016Q4

REPORT INFORMATION
  Report Type: Spontaneous
  Country: US (occurrence: US)
  Receive Date: 20161004
  Receipt Date: 20161004
  Transmission Date: 20170207
  Serious: No
  Sender: FDA-Public Use
  Company Number: US-GLAXOSMITHKLINE-US2016143171

PATIENT
  Age: 55 Year
  Sex: Male

DRUGS (1)
  1. ANORO ELLIPTA [Suspect]
     Active Substance: UMECLIDINIUM BROMIDE\VILANTEROL TRIFENATATE
     Indication: DYSPNOEA
     Dosage: 2 PUFF(S), QD
     Route: 055
     Dates: start: 20160928

REACTIONS (2)
  - Prescribed overdose [Unknown]
  - Product label confusion [Unknown]

NARRATIVE: CASE EVENT DATE: 20160928
